FAERS Safety Report 6769399-5 (Version None)
Quarter: 2010Q2

REPORT INFORMATION
  Report Type: 
  Country: None (occurrence: None)
  Receive Date: 20100615
  Receipt Date: 20100611
  Transmission Date: 20101027
  Serious: Yes (Death, Other)
  Sender: FDA-Public Use
  Company Number: PHHY2010VE38130

PATIENT
  Sex: Male

DRUGS (1)
  1. SANDOSTATIN [Suspect]
     Indication: GASTROINTESTINAL DISORDER
     Dosage: UNK
     Dates: start: 20100114

REACTIONS (5)
  - GASTROINTESTINAL BACTERIAL INFECTION [None]
  - GASTROINTESTINAL DISORDER [None]
  - INTESTINAL INFARCTION [None]
  - NECROTISING COLITIS [None]
  - PLATELET COUNT DECREASED [None]
